FAERS Safety Report 6598156-8 (Version None)
Quarter: 2010Q1

REPORT INFORMATION
  Report Type: 
  Country: None (occurrence: None)
  Receive Date: 20100224
  Receipt Date: 20050111
  Transmission Date: 20100710
  Serious: No
  Sender: FDA-Public Use
  Company Number: US-ALLERGAN-200500536

PATIENT
  Sex: Female

DRUGS (1)
  1. BOTOX [Suspect]
     Indication: MUSCLE SPASMS
     Dosage: 300UNITS, PRN
     Route: 030

REACTIONS (4)
  - DYSPNOEA [None]
  - PRURITUS [None]
  - RASH [None]
  - URTICARIA [None]
